FAERS Safety Report 16408057 (Version 1)
Quarter: 2019Q2

REPORT INFORMATION
  Report Type: Spontaneous
  Country: PT (occurrence: PT)
  Receive Date: 20190610
  Receipt Date: 20190610
  Transmission Date: 20190711
  Serious: Yes (Other)
  Sender: FDA-Public Use
  Company Number: PT-TEVA-2019-PT-1059910

PATIENT
  Age: 66 Year
  Sex: Male
  Weight: 70 kg

DRUGS (5)
  1. FUROSEMIDE. [Interacting]
     Active Substance: FUROSEMIDE
     Indication: ASCITES
     Dosage: 40 MILLIGRAM DAILY;
     Dates: start: 20190503, end: 20190504
  2. CARVEDILOL. [Suspect]
     Active Substance: CARVEDILOL
     Indication: VARICES OESOPHAGEAL
     Dosage: 6.25 MILLIGRAM DAILY;
     Route: 048
     Dates: start: 20190503
  3. PIPERACILINA + TAZOBACTAM [Concomitant]
     Active Substance: PIPERACILLIN SODIUM\TAZOBACTAM SODIUM
     Indication: PYREXIA
     Dosage: 18 GRAM DAILY;
     Route: 042
     Dates: start: 20190503
  4. SPIRONOLACTONE. [Interacting]
     Active Substance: SPIRONOLACTONE
     Indication: ASCITES
     Dosage: 100 MILLIGRAM DAILY;
     Route: 048
     Dates: start: 20190503, end: 20190504
  5. ALLOPURINOL. [Concomitant]
     Active Substance: ALLOPURINOL
     Indication: GOUT
     Dosage: 100 MILLIGRAM DAILY;
     Route: 048

REACTIONS (3)
  - Hypotension [Recovered/Resolved]
  - Drug interaction [Unknown]
  - Acute kidney injury [Recovered/Resolved]

NARRATIVE: CASE EVENT DATE: 20190504
